FAERS Safety Report 6247658-2 (Version None)
Quarter: 2009Q2

REPORT INFORMATION
  Report Type: 
  Country: None (occurrence: None)
  Receive Date: 20090626
  Receipt Date: 20090616
  Transmission Date: 20091009
  Serious: Yes (Hospitalization, Other)
  Sender: FDA-Public Use
  Company Number: US-PFIZER INC-2009229237

PATIENT
  Sex: Male
  Weight: 74.842 kg

DRUGS (10)
  1. SOLU-MEDROL [Suspect]
     Indication: MULTIPLE SCLEROSIS
     Dosage: DAILY
     Route: 042
     Dates: start: 20060101, end: 20060101
  2. LYRICA [Suspect]
     Indication: MUSCLE SPASTICITY
     Dosage: EVERYDAY
     Route: 048
     Dates: start: 20060404, end: 20060404
  3. SYNTHROID [Concomitant]
     Dosage: UNK
  4. FLUOXETINE [Concomitant]
     Dosage: UNK
  5. FOLIC ACID [Concomitant]
     Dosage: UNK
  6. VITAMIN B-12 [Concomitant]
     Dosage: UNK
  7. PEPCID [Concomitant]
     Dosage: UNK
  8. METOPROLOL [Concomitant]
     Dosage: UNK
  9. METFORMIN [Concomitant]
     Dosage: UNK
  10. BACLOFEN [Concomitant]
     Dosage: UNK
     Route: 037

REACTIONS (4)
  - CIRCUMSTANCE OR INFORMATION CAPABLE OF LEADING TO MEDICATION ERROR [None]
  - DEHYDRATION [None]
  - DERMATITIS ACNEIFORM [None]
  - UNRESPONSIVE TO STIMULI [None]
